FAERS Safety Report 12606386 (Version 1)
Quarter: 2016Q3

REPORT INFORMATION
  Report Type: Spontaneous
  Country: FR (occurrence: FR)
  Receive Date: 20160729
  Receipt Date: 20160729
  Transmission Date: 20161109
  Serious: Yes (Hospitalization)
  Sender: FDA-Public Use
  Company Number: FR-TEVA-679562ISR

PATIENT
  Age: 72 Year
  Sex: Male
  Weight: 72 kg

DRUGS (8)
  1. VELBE 10 MG [Suspect]
     Active Substance: VINBLASTINE SULFATE
     Dosage: 5.6 MILLIGRAM DAILY; 2ND COURSE OF MVAC PROTOCOL
     Route: 041
     Dates: start: 20160322, end: 20160322
  2. CISPLATINE ACCORD 1 MG/ML [Suspect]
     Active Substance: CISPLATIN
     Indication: BLADDER TRANSITIONAL CELL CARCINOMA
     Dosage: 18.5714 MILLIGRAM DAILY;
     Route: 041
     Dates: start: 20160307, end: 20160322
  3. NEULASTA [Concomitant]
     Active Substance: PEGFILGRASTIM
     Dates: start: 201603
  4. METHOTREXATE (METHOTREXATE SODIUM) [Suspect]
     Active Substance: METHOTREXATE SODIUM
     Indication: BLADDER TRANSITIONAL CELL CARCINOMA
     Dosage: 55 MILLIGRAM DAILY; 1ST COURSE OF MVAC PROTOCOL
     Route: 041
     Dates: start: 20160307, end: 20160307
  5. METHOTREXATE (METHOTREXATE SODIUM) [Suspect]
     Active Substance: METHOTREXATE SODIUM
     Dosage: 55 MILLIGRAM DAILY; 2ND COURSE OF MVAC PROTOCOL
     Route: 041
     Dates: start: 20160322, end: 20160322
  6. DOXORUBICINE TEVA [Suspect]
     Active Substance: DOXORUBICIN
     Indication: BLADDER TRANSITIONAL CELL CARCINOMA
     Dosage: 56 MILLIGRAM DAILY; 1ST COURSE OF MVAC PROTOCOL
     Route: 041
     Dates: start: 20160307, end: 20160307
  7. DOXORUBICINE TEVA [Suspect]
     Active Substance: DOXORUBICIN
     Dosage: 56 MILLIGRAM DAILY; 2ND COURSE OF MVAC PROTOCOL
     Route: 041
     Dates: start: 20160322, end: 20160322
  8. VELBE 10 MG [Suspect]
     Active Substance: VINBLASTINE SULFATE
     Indication: BLADDER TRANSITIONAL CELL CARCINOMA
     Dosage: 5.6 MILLIGRAM DAILY; 1ST COURSE OF MVAC PROTOCOL
     Route: 041
     Dates: start: 20160307, end: 20160307

REACTIONS (14)
  - Decreased appetite [Unknown]
  - Dehydration [Unknown]
  - Multiple organ dysfunction syndrome [None]
  - Vomiting [Unknown]
  - Tachypnoea [None]
  - Immunosuppression [None]
  - Renal tubular necrosis [None]
  - Septic shock [Recovered/Resolved]
  - Acute kidney injury [Recovered/Resolved with Sequelae]
  - Hypoperfusion [Unknown]
  - Diarrhoea [Unknown]
  - General physical health deterioration [Unknown]
  - Febrile bone marrow aplasia [Recovered/Resolved]
  - Disorientation [None]

NARRATIVE: CASE EVENT DATE: 201603
